FAERS Safety Report 9722402 (Version 2)
Quarter: 2014Q2

REPORT INFORMATION
  Report Type: Report from Study
  Country: CA (occurrence: CA)
  Receive Date: 20131202
  Receipt Date: 20140507
  Transmission Date: 20141212
  Serious: Yes (Death, Hospitalization)
  Sender: FDA-Public Use
  Company Number: CA-JNJFOC-20131118049

PATIENT
  Sex: Female
  Weight: 79.5 kg

DRUGS (1)
  1. REMICADE [Suspect]
     Indication: CROHN^S DISEASE
     Route: 042
     Dates: start: 20080401, end: 20131011

REACTIONS (3)
  - Death [Fatal]
  - Non-Hodgkin^s lymphoma [Unknown]
  - Renal disorder [Unknown]
